FAERS Safety Report 10020793 (Version 1)
Quarter: 2014Q1

REPORT INFORMATION
  Report Type: Spontaneous
  Country: FI (occurrence: FI)
  Receive Date: 20140319
  Receipt Date: 20140319
  Transmission Date: 20141002
  Serious: Yes (Other)
  Sender: FDA-Public Use
  Company Number: FI-AMGEN-FINSP2014018762

PATIENT
  Age: 46 Year
  Sex: Female

DRUGS (4)
  1. NEULASTA [Suspect]
     Indication: PRODUCT USED FOR UNKNOWN INDICATION
     Dosage: UNK
     Route: 065
     Dates: start: 20140304
  2. PACLITAXEL [Concomitant]
     Indication: OVARIAN CANCER
     Dosage: 2 CYCLES
  3. CARBOPLATIN [Concomitant]
     Indication: OVARIAN CANCER
     Dosage: 2 CYCLES
  4. DOCETAXEL [Concomitant]
     Indication: OVARIAN CANCER
     Dosage: 2 CYCLES

REACTIONS (2)
  - Sepsis [Unknown]
  - Neutrophil count abnormal [Recovered/Resolved]
